FAERS Safety Report 17811368 (Version 4)
Quarter: 2020Q4

REPORT INFORMATION
  Report Type: Report from Study
  Country: None (occurrence: TR)
  Receive Date: 20200521
  Receipt Date: 20201117
  Transmission Date: 20210113
  Serious: Yes (Death, Hospitalization)
  Sender: FDA-Public Use
  Company Number: TR-ABBVIE-20K-161-3409455-00

PATIENT
  Age: 81 Year
  Sex: Female
  Weight: 53 kg

DRUGS (5)
  1. LERCADIP [Concomitant]
     Active Substance: LERCANIDIPINE HYDROCHLORIDE
     Indication: HYPERTENSION
     Route: 048
  2. DUODOPA [Suspect]
     Active Substance: CARBIDOPA\LEVODOPA
     Dosage: MORNING DOSE: 6.2 ML, CONTINOUS DOSE: 5.5 ML, EXTRA DOSE: 2.0 ML
     Route: 050
     Dates: start: 20200821
  3. AMLODIS [Concomitant]
     Indication: HYPERTENSION
     Route: 048
  4. DUODOPA [Suspect]
     Active Substance: CARBIDOPA\LEVODOPA
     Indication: PARKINSON^S DISEASE
     Dosage: MORNING DOSE: 6.2 ML, CONTINOUS DOSE: 5.5 ML, EXTRA DOSE: 2.0 ML
     Route: 050
     Dates: start: 20181016, end: 20200518
  5. STALEVO [Concomitant]
     Active Substance: CARBIDOPA\ENTACAPONE\LEVODOPA
     Indication: PARKINSON^S DISEASE
     Route: 048

REACTIONS (4)
  - Decubitus ulcer [Recovering/Resolving]
  - Death [Fatal]
  - Fall [Recovered/Resolved]
  - Fracture [Recovered/Resolved]

NARRATIVE: CASE EVENT DATE: 20200428
